FAERS Safety Report 6073353-9 (Version None)
Quarter: 2009Q1

REPORT INFORMATION
  Report Type: 
  Country: None (occurrence: None)
  Receive Date: 20090211
  Receipt Date: 20090206
  Transmission Date: 20090719
  Serious: Yes (Death, Other)
  Sender: FDA-Public Use
  Company Number: PHHY2009BR04463

PATIENT
  Age: 87 Year
  Sex: Male

DRUGS (1)
  1. DIOVAN [Suspect]
     Dosage: 80 MG, UNK

REACTIONS (4)
  - ARTERIOSCLEROSIS CORONARY ARTERY [None]
  - CARDIOPULMONARY FAILURE [None]
  - DEPRESSION [None]
  - MYOCARDIAL INFARCTION [None]
